FAERS Safety Report 9538405 (Version 2)
Quarter: 2013Q4

REPORT INFORMATION
  Report Type: Spontaneous
  Country: US (occurrence: US)
  Receive Date: 20130920
  Receipt Date: 20131104
  Transmission Date: 20140711
  Serious: No
  Sender: FDA-Public Use
  Company Number: US-PFIZER INC-2013269876

PATIENT
  Age: 42 Year
  Sex: Male
  Weight: 70.2 kg

DRUGS (4)
  1. CHANTIX [Suspect]
     Indication: SMOKING CESSATION THERAPY
     Dosage: 0.5 MG, DAILY
  2. CHANTIX [Suspect]
     Dosage: 0.5 MG, DAILY
     Dates: start: 20130809, end: 2013
  3. CHANTIX [Suspect]
     Dosage: UNK
     Dates: start: 2013
  4. TOPIRAMATE [Suspect]
     Indication: MIGRAINE
     Dosage: 250MG DAILY AT BED TIME
     Route: 048

REACTIONS (4)
  - Abnormal dreams [Not Recovered/Not Resolved]
  - Hostility [Not Recovered/Not Resolved]
  - Nausea [Not Recovered/Not Resolved]
  - Somnolence [Not Recovered/Not Resolved]
